FAERS Safety Report 4827514-4 (Version None)
Quarter: 2005Q4

REPORT INFORMATION
  Report Type: 
  Country: None (occurrence: None)
  Receive Date: 20051114
  Receipt Date: 20051107
  Transmission Date: 20060501
  Serious: Yes (Death, Hospitalization)
  Sender: FDA-Public Use
  Company Number: PHBS2005PT16456

PATIENT
  Age: 67 Year
  Sex: Male

DRUGS (9)
  1. LEPONEX [Suspect]
     Indication: AGITATION
     Dosage: 50 +100 MG/D
     Route: 048
     Dates: start: 20051007, end: 20051010
  2. FOLIC ACID [Concomitant]
     Indication: POLYCYTHAEMIA
     Route: 048
  3. INDAPAMIDE [Concomitant]
     Indication: HYPERTENSION
     Route: 048
  4. VITAMIN B-12 [Concomitant]
     Indication: POLYCYTHAEMIA
     Route: 048
  5. CARBIDOPA W/LEVODOPA [Concomitant]
     Indication: PARKINSON'S DISEASE
     Route: 048
  6. ALOPURINOL [Concomitant]
     Indication: HYPERURICAEMIA
     Route: 048
  7. TANSULOSINE [Concomitant]
     Indication: HYPERTROPHY
     Route: 048
  8. RISPERIDONE [Concomitant]
     Indication: AGITATION
     Dosage: UNK, UNK
     Route: 048
     Dates: end: 20051008
  9. LEVOMEPROMAZINE [Concomitant]
     Indication: AGITATION
     Route: 048
     Dates: end: 20051008

REACTIONS (12)
  - AGITATION [None]
  - ASTHENIA [None]
  - BLOOD CREATININE INCREASED [None]
  - CARDIAC FAILURE [None]
  - CONFUSIONAL STATE [None]
  - DYSKINESIA [None]
  - DYSPNOEA [None]
  - HYPERHIDROSIS [None]
  - HYPOTENSION [None]
  - INCOHERENT [None]
  - NEUROLEPTIC MALIGNANT SYNDROME [None]
  - TREMOR [None]
